FAERS Safety Report 14220591 (Version 1)
Quarter: 2017Q4

REPORT INFORMATION
  Report Type: Spontaneous
  Country: US (occurrence: US)
  Receive Date: 20171124
  Receipt Date: 20171124
  Transmission Date: 20180321
  Serious: Yes (Other)
  Sender: FDA-Public Use
  Company Number: PHHY2017US170536

PATIENT
  Age: 74 Year
  Sex: Female

DRUGS (2)
  1. TRAMETINIB [Suspect]
     Active Substance: TRAMETINIB
     Indication: LUNG ADENOCARCINOMA STAGE III
     Route: 065
  2. DABRAFENIB [Suspect]
     Active Substance: DABRAFENIB
     Indication: LUNG ADENOCARCINOMA STAGE III
     Dosage: 150 MG, BID
     Route: 048
     Dates: start: 201504

REACTIONS (8)
  - Lung adenocarcinoma stage III [Unknown]
  - Product use in unapproved indication [Unknown]
  - Productive cough [Unknown]
  - Hypokalaemia [Unknown]
  - Drug intolerance [Unknown]
  - Metastases to lymph nodes [Unknown]
  - Malignant neoplasm progression [Unknown]
  - Metastases to abdominal cavity [Unknown]
